FAERS Safety Report 5934831-3 (Version None)
Quarter: 2008Q4

REPORT INFORMATION
  Report Type: 
  Country: None (occurrence: None)
  Receive Date: 20081027
  Receipt Date: 20081016
  Transmission Date: 20090506
  Serious: Yes (Other)
  Sender: FDA-Public Use
  Company Number: FEI2008-1806

PATIENT
  Age: 25 Year
  Sex: Female
  Weight: 47.1741 kg

DRUGS (4)
  1. PARAGARD T 380A [Suspect]
     Indication: CONTRACEPTION
     Dosage: INTRA-UTERINE
     Route: 015
     Dates: start: 20080724, end: 20080826
  2. TEGRETOL [Concomitant]
  3. ZONEGRAN [Concomitant]
  4. KEPPRA [Concomitant]

REACTIONS (3)
  - CONDITION AGGRAVATED [None]
  - CONVULSION [None]
  - MENORRHAGIA [None]
